FAERS Safety Report 8829407 (Version 1)
Quarter: 2012Q4

REPORT INFORMATION
  Report Type: 
  Country: US (occurrence: US)
  Receive Date: 20121008
  Receipt Date: 20121008
  Transmission Date: 20130627
  Serious: Yes (Death)
  Sender: FDA-Public Use
  Company Number: US-ROCHE-1131409

PATIENT
  Sex: Male

DRUGS (18)
  1. RITUXAN [Suspect]
     Indication: HODGKIN^S DISEASE LYMPHOCYTE DEPLETION TYPE REFRACTORY
     Route: 065
  2. ADRIAMYCIN [Concomitant]
  3. BLEOMYCIN [Concomitant]
  4. VINCRISTIN [Concomitant]
  5. DACARBAZINE [Concomitant]
  6. MECHLORETHAMINE [Concomitant]
  7. PROCARBAZINE [Concomitant]
  8. PREDNISONE [Concomitant]
  9. COUMADIN [Concomitant]
  10. URECHOLINE [Concomitant]
  11. NIFEREX [Concomitant]
  12. BETAPACE [Concomitant]
  13. PREVACID [Concomitant]
  14. LASIX [Concomitant]
  15. NAPROSYN [Concomitant]
  16. PROCRIT [Concomitant]
  17. TESSALON PERLES [Concomitant]
  18. PENICILLINS [Concomitant]

REACTIONS (4)
  - Death [Fatal]
  - Constipation [Unknown]
  - Dyspnoea [Unknown]
  - Neuropathy peripheral [Unknown]
